FAERS Safety Report 7196987-7 (Version None)
Quarter: 2010Q4

REPORT INFORMATION
  Report Type: 
  Country: None (occurrence: None)
  Receive Date: 20101224
  Receipt Date: 20101214
  Transmission Date: 20110411
  Serious: Yes (Hospitalization, Other)
  Sender: FDA-Public Use
  Company Number: JP-PFIZER INC-2010174549

PATIENT
  Age: 13 Year
  Sex: Female

DRUGS (10)
  1. TAKEPRON [Suspect]
     Indication: PRODUCT USED FOR UNKNOWN INDICATION
     Dosage: 15 MG, 1X/DAY
     Route: 048
     Dates: start: 20091127
  2. PREDNISOLONE [Suspect]
     Indication: PRODUCT USED FOR UNKNOWN INDICATION
     Dosage: 10 MG, 1X/DAY
     Route: 065
     Dates: start: 20091127, end: 20100513
  3. NEUPOGEN [Suspect]
     Indication: PRODUCT USED FOR UNKNOWN INDICATION
     Dosage: 50 UG, 1X/DAY
     Route: 042
     Dates: start: 20100519, end: 20100522
  4. VALGANCICLOVIR HYDROCHLORIDE (VALCYTE) [Suspect]
     Indication: SMALL INTESTINE TRANSPLANT
     Dosage: 450 UG, 1X/DAY
     Route: 048
     Dates: start: 20091127, end: 20100519
  5. BACTRIM [Suspect]
     Indication: SMALL INTESTINE TRANSPLANT
     Dosage: UNK
     Route: 048
     Dates: start: 20091127
  6. ACYCLOVIR [Suspect]
     Indication: SMALL INTESTINE TRANSPLANT
     Dosage: UNK
     Route: 048
     Dates: start: 20091130
  7. MYCOSYST [Suspect]
     Indication: PRODUCT USED FOR UNKNOWN INDICATION
     Dosage: 100 MG, 1X/DAY
     Route: 048
     Dates: start: 20091127
  8. PROGRAF [Suspect]
     Indication: PRODUCT USED FOR UNKNOWN INDICATION
     Dosage: 7 MG, 1X/DAY
     Route: 048
     Dates: start: 20091127, end: 20100512
  9. DIPYRIDAMOLE [Concomitant]
  10. BIOFERMIN [Concomitant]

REACTIONS (2)
  - NEUTROPENIA [None]
  - WHITE BLOOD CELL COUNT DECREASED [None]
